FAERS Safety Report 9479592 (Version 1)
Quarter: 2013Q3

REPORT INFORMATION
  Report Type: Report from Study
  Country: BR (occurrence: BR)
  Receive Date: 20130827
  Receipt Date: 20130827
  Transmission Date: 20140515
  Serious: Yes (Other)
  Sender: FDA-Public Use
  Company Number: PHHY2013BR091922

PATIENT
  Age: 53 Year
  Sex: Male

DRUGS (3)
  1. CICLOSPORIN [Suspect]
     Indication: IMMUNOSUPPRESSION
     Dosage: 150 MG, BID
  2. AZATHIOPRINE [Suspect]
     Indication: IMMUNOSUPPRESSION
     Dosage: 150 MG/MID
  3. PREDNISONE [Suspect]
     Indication: IMMUNOSUPPRESSION

REACTIONS (7)
  - Arterial stenosis [Unknown]
  - Hyperparathyroidism tertiary [Unknown]
  - Renal impairment [Unknown]
  - Thyroid cancer [Unknown]
  - Blood creatinine increased [Unknown]
  - Hypercalcaemia [Unknown]
  - Hypoperfusion [Unknown]
